FAERS Safety Report 7939666-8 (Version None)
Quarter: 2011Q4

REPORT INFORMATION
  Report Type: 
  Country: None (occurrence: None)
  Receive Date: 20111125
  Receipt Date: 20111116
  Transmission Date: 20120403
  Serious: Yes (Other)
  Sender: FDA-Public Use
  Company Number: PHHY2011CA16134

PATIENT
  Sex: Female

DRUGS (2)
  1. ZOLEDRONOC ACID [Suspect]
     Indication: OSTEOPOROSIS
     Dosage: 5 MG / 100 ML
     Route: 042
     Dates: start: 20090219
  2. PREDNISONE TAB [Concomitant]
     Dosage: UNK UKN, UNK

REACTIONS (6)
  - GAIT DISTURBANCE [None]
  - BONE PAIN [None]
  - DRUG INEFFECTIVE [None]
  - BONE DISORDER [None]
  - SPINAL COMPRESSION FRACTURE [None]
  - RIB FRACTURE [None]
